FAERS Safety Report 6435103-3 (Version None)
Quarter: 2009Q4

REPORT INFORMATION
  Report Type: 
  Country: None (occurrence: None)
  Receive Date: 20091110
  Receipt Date: 20091028
  Transmission Date: 20100525
  Serious: Yes (Hospitalization)
  Sender: FDA-Public Use
  Company Number: JP-ROCHE-632525

PATIENT
  Sex: Male
  Weight: 51 kg

DRUGS (4)
  1. PEGASYS [Suspect]
     Indication: HEPATITIS C
     Route: 058
     Dates: start: 20090318, end: 20090422
  2. COPEGUS [Suspect]
     Indication: HEPATITIS C
     Dosage: DIVIDED IN TWO DOSES
     Route: 048
     Dates: start: 20090318, end: 20090422
  3. LANSOPRAZOLE [Concomitant]
     Route: 048
     Dates: start: 20080813
  4. LENDORMIN [Concomitant]
     Dosage: DRUG NAME REPORTED: LENDORMIN D.
     Route: 048
     Dates: start: 20080811

REACTIONS (1)
  - FACIAL PALSY [None]
